FAERS Safety Report 14966755 (Version 1)
Quarter: 2018Q2

REPORT INFORMATION
  Report Type: Spontaneous
  Country: KR (occurrence: KR)
  Receive Date: 20180604
  Receipt Date: 20180604
  Transmission Date: 20180711
  Serious: No
  Sender: FDA-Public Use
  Company Number: KR-CHEPLA-C20170632

PATIENT
  Age: 27 Year
  Sex: Male

DRUGS (1)
  1. XENICAL [Suspect]
     Active Substance: ORLISTAT
     Route: 048

REACTIONS (2)
  - Steatorrhoea [Unknown]
  - Drug ineffective [Unknown]
